FAERS Safety Report 16957374 (Version 2)
Quarter: 2019Q4

REPORT INFORMATION
  Report Type: Spontaneous
  Country: JP (occurrence: JP)
  Receive Date: 20191024
  Receipt Date: 20191226
  Transmission Date: 20200122
  Serious: No
  Sender: FDA-Public Use
  Company Number: JP-GLAXOSMITHKLINE-JP2019JPN189914

PATIENT
  Age: 36 Year
  Sex: Female

DRUGS (1)
  1. IMIGRAN STATDOSE [Suspect]
     Active Substance: SUMATRIPTAN
     Indication: CLUSTER HEADACHE
     Dosage: UNK
     Route: 058

REACTIONS (1)
  - Injection site bruising [Unknown]
